FAERS Safety Report 7883729-2 (Version None)
Quarter: 2011Q4

REPORT INFORMATION
  Report Type: 
  Country: None (occurrence: None)
  Receive Date: 20111102
  Receipt Date: 20111021
  Transmission Date: 20120403
  Serious: Yes (Hospitalization)
  Sender: FDA-Public Use
  Company Number: JP-JNJFOC-20110801595

PATIENT
  Sex: Male
  Weight: 135 kg

DRUGS (10)
  1. PYRINAZIN [Concomitant]
     Indication: PROPHYLAXIS
     Route: 048
  2. TALION [Concomitant]
     Indication: PUSTULAR PSORIASIS
     Route: 048
     Dates: start: 20100301
  3. REMICADE [Suspect]
     Route: 042
     Dates: start: 20110322
  4. REMICADE [Suspect]
     Route: 042
     Dates: start: 20100301
  5. FAMOTIDINE [Concomitant]
     Indication: PROPHYLAXIS
     Route: 048
     Dates: start: 20100222
  6. REMICADE [Suspect]
     Indication: PUSTULAR PSORIASIS
     Route: 042
     Dates: start: 20110616
  7. REMICADE [Suspect]
     Route: 042
     Dates: start: 20100809
  8. REMICADE [Suspect]
     Route: 042
     Dates: start: 20110419
  9. OLOPATADINE HCL [Concomitant]
     Indication: PUSTULAR PSORIASIS
     Route: 048
     Dates: start: 20100402
  10. REMICADE [Suspect]
     Route: 042
     Dates: start: 20110308

REACTIONS (1)
  - DIVERTICULITIS [None]
